FAERS Safety Report 21114611 (Version 4)
Quarter: 2022Q3

REPORT INFORMATION
  Report Type: Spontaneous
  Country: GB (occurrence: GB)
  Receive Date: 20220721
  Receipt Date: 20220825
  Transmission Date: 20221027
  Serious: Yes (Hospitalization, Other)
  Sender: FDA-Public Use
  Company Number: GB-BIOMARINAP-GB-2022-144501

PATIENT

DRUGS (1)
  1. NAGLAZYME [Suspect]
     Active Substance: GALSULFASE
     Indication: Mucopolysaccharidosis VI
     Dosage: 25 MILLIGRAM, QW
     Route: 042

REACTIONS (6)
  - COVID-19 [Recovering/Resolving]
  - Haemoptysis [Recovering/Resolving]
  - Productive cough [Recovering/Resolving]
  - Respiratory rate increased [Unknown]
  - Tachypnoea [Unknown]
  - Pyrexia [Unknown]
